FAERS Safety Report 8978302 (Version 2)
Quarter: 2013Q4

REPORT INFORMATION
  Report Type: Spontaneous
  Country: US (occurrence: US)
  Receive Date: 20121221
  Receipt Date: 20131011
  Transmission Date: 20140711
  Serious: Yes (Other)
  Sender: FDA-Public Use
  Company Number: US-009507513-1212USA007463

PATIENT
  Sex: Male

DRUGS (5)
  1. PEGINTRON [Suspect]
     Indication: HEPATITIS C
     Dosage: UNK REDIPEN
     Dates: start: 20120201
  2. PEGINTRON [Suspect]
     Dosage: UNK REDIPEN
     Dates: start: 20120201
  3. PEGINTRON [Suspect]
     Dosage: UNK DOSE FORM UNKNOWN
     Dates: start: 20120201
  4. REBETOL [Suspect]
     Indication: HEPATITIS C
     Dosage: UNK
     Route: 048
     Dates: start: 20120201
  5. VICTRELIS [Suspect]
     Indication: HEPATITIS C
     Dosage: UNK
     Route: 048
     Dates: start: 20120201

REACTIONS (2)
  - Surgery [Unknown]
  - Injection site reaction [Unknown]
